FAERS Safety Report 21836528 (Version 1)
Quarter: 2023Q1

REPORT INFORMATION
  Report Type: Spontaneous
  Country: DE (occurrence: DE)
  Receive Date: 20230109
  Receipt Date: 20230109
  Transmission Date: 20230417
  Serious: No
  Sender: FDA-Public Use
  Company Number: DE-ALKEM LABORATORIES LIMITED-DE-ALKEM-2022-12706

PATIENT
  Age: 87 Year
  Sex: Male

DRUGS (2)
  1. IBUPROFEN [Interacting]
     Active Substance: IBUPROFEN
     Indication: Product used for unknown indication
     Dosage: UNK
     Route: 048
  2. MARCUMAR [Interacting]
     Active Substance: PHENPROCOUMON
     Indication: Product used for unknown indication
     Dosage: UNK, TABLET
     Route: 048

REACTIONS (3)
  - Laboratory test abnormal [Unknown]
  - Drug interaction [Unknown]
  - Product dose omission issue [Unknown]
